FAERS Safety Report 7519503-6 (Version None)
Quarter: 2011Q2

REPORT INFORMATION
  Report Type: 
  Country: None (occurrence: None)
  Receive Date: 20110602
  Receipt Date: 20110519
  Transmission Date: 20111010
  Serious: Yes (Life-Threatening)
  Sender: FDA-Public Use
  Company Number: IT-JNJFOC-20110509200

PATIENT
  Age: 54 Year
  Sex: Male

DRUGS (1)
  1. REMICADE [Suspect]
     Indication: DIFFUSE VASCULITIS
     Route: 042
     Dates: start: 20100326, end: 20110518

REACTIONS (7)
  - OXYGEN SATURATION DECREASED [None]
  - CONJUNCTIVAL HYPERAEMIA [None]
  - ERYTHEMA [None]
  - HYPOTENSION [None]
  - DYSPNOEA [None]
  - PRESYNCOPE [None]
  - BRADYCARDIA [None]
